FAERS Safety Report 4292720-7 (Version None)
Quarter: 2004Q1

REPORT INFORMATION
  Report Type: 
  Country: None (occurrence: None)
  Receive Date: 20040211
  Receipt Date: 20031219
  Transmission Date: 20041129
  Serious: Yes (Hospitalization)
  Sender: FDA-Public Use
  Company Number: WAES 0312USA02204

PATIENT
  Age: 69 Year
  Sex: Male

DRUGS (18)
  1. ASPIRIN [Concomitant]
  2. BUMETANIDE [Concomitant]
     Route: 048
     Dates: end: 20031218
  3. GEMFIBROZIL [Concomitant]
     Route: 048
     Dates: end: 20031218
  4. HYDRODIURIL [Concomitant]
     Route: 048
  5. INSULIN [Concomitant]
  6. INSULIN, ISOPHANE [Concomitant]
  7. INSULIN, ISOPHANE [Concomitant]
  8. IRON (UNSPECIFIED) [Concomitant]
  9. ISOSORBIDE MONONITRATE [Concomitant]
  10. METOPROLOL [Concomitant]
  11. PROPOXYPHENE HYDROCHLORIDE [Concomitant]
  12. RABEPRAZOLE SODIUM [Concomitant]
  13. ZOCOR [Suspect]
     Indication: HYPERCHOLESTEROLAEMIA
     Route: 048
     Dates: end: 20031113
  14. ZOCOR [Suspect]
     Route: 048
     Dates: start: 20031114, end: 20031119
  15. ZOCOR [Suspect]
     Route: 048
     Dates: start: 20031120, end: 20031218
  16. ZOCOR [Suspect]
     Indication: HYPERLIPIDAEMIA
     Route: 048
     Dates: end: 20031113
  17. ZOCOR [Suspect]
     Route: 048
     Dates: start: 20031114, end: 20031119
  18. ZOCOR [Suspect]
     Route: 048
     Dates: start: 20031120, end: 20031218

REACTIONS (4)
  - MEDICATION ERROR [None]
  - MYOSITIS [None]
  - RENAL FAILURE [None]
  - RHABDOMYOLYSIS [None]
